FAERS Safety Report 4707775-2 (Version None)
Quarter: 2005Q2

REPORT INFORMATION
  Report Type: 
  Country: None (occurrence: None)
  Receive Date: 20050629
  Receipt Date: 20050418
  Transmission Date: 20051028
  Serious: No
  Sender: FDA-Public Use
  Company Number: 05P-163-0297693-00

PATIENT
  Age: 76 Year

DRUGS (7)
  1. HUMIRA [Suspect]
     Indication: RHEUMATOID ARTHRITIS
     Dosage: 40 MG, 1 IN 2 WK, SUBCUTANEOUS
     Route: 058
     Dates: start: 20030101, end: 20050601
  2. LISINOPRIL [Concomitant]
  3. BABY ASIPIRIN [Concomitant]
  4. MEDROXYPROGESTERONE ACETATE [Concomitant]
  5. ESTROGEN CONJUGATED [Concomitant]
  6. TOCOPHEROOL [Concomitant]
  7. MAGNESIUM [Concomitant]

REACTIONS (2)
  - COUGH [None]
  - NASAL CONGESTION [None]
